FAERS Safety Report 5098093-4 (Version None)
Quarter: 2006Q3

REPORT INFORMATION
  Report Type: 
  Country: None (occurrence: None)
  Receive Date: 20060906
  Receipt Date: 20060410
  Transmission Date: 20061208
  Serious: No
  Sender: FDA-Public Use
  Company Number: US-GLAXOSMITHKLINE-A0601151A

PATIENT
  Age: 33 Year
  Sex: Female

DRUGS (2)
  1. REQUIP [Suspect]
     Dosage: .25MG PER DAY
     Route: 048
     Dates: start: 20060203
  2. UNSPECIFIED DRUG(S) [Concomitant]

REACTIONS (7)
  - FALL [None]
  - HYPERHIDROSIS [None]
  - NAUSEA [None]
  - TREMOR [None]
  - VERTIGO [None]
  - VISION BLURRED [None]
  - VOMITING [None]
